FAERS Safety Report 20651737 (Version 3)
Quarter: 2022Q3

REPORT INFORMATION
  Report Type: Spontaneous
  Country: CN (occurrence: CN)
  Receive Date: 20220330
  Receipt Date: 20220830
  Transmission Date: 20221027
  Serious: Yes (Death)
  Sender: FDA-Public Use
  Company Number: CN-NOVOPROD-903453

PATIENT
  Age: 57 Year
  Sex: Male
  Weight: 75.1 kg

DRUGS (14)
  1. RYZODEG 70/30 [Suspect]
     Active Substance: INSULIN ASPART\INSULIN DEGLUDEC
     Dosage: 34 IU, QD(21 U IN THE MORNING AND 13 U IN THE EVENING)
     Route: 058
     Dates: start: 20220110, end: 20220124
  2. RYZODEG 70/30 [Suspect]
     Active Substance: INSULIN ASPART\INSULIN DEGLUDEC
     Indication: Type 2 diabetes mellitus
     Dosage: 10 IU, QD(5 U IN THE MORNING AND 5 U IN THE EVENING)
     Route: 058
     Dates: start: 20211130
  3. RYZODEG 70/30 [Suspect]
     Active Substance: INSULIN ASPART\INSULIN DEGLUDEC
     Dosage: 28 IU, QD(15 U IN THE MORNING AND 13 U IN THE EVENING)
     Route: 058
     Dates: start: 20211220, end: 20211227
  4. RYZODEG 70/30 [Suspect]
     Active Substance: INSULIN ASPART\INSULIN DEGLUDEC
     Dosage: 20 IU, QD(11 U IN THE MORNING AND 9 U IN THE EVENING)
     Route: 058
     Dates: start: 20211213, end: 20211220
  5. RYZODEG 70/30 [Suspect]
     Active Substance: INSULIN ASPART\INSULIN DEGLUDEC
     Dosage: 18 IU, QD(WAS 9 U IN THE MORNING AND 9 U IN THE EVENING)
     Route: 058
     Dates: start: 20211206, end: 20211213
  6. RYZODEG 70/30 [Suspect]
     Active Substance: INSULIN ASPART\INSULIN DEGLUDEC
     Dosage: 34 IU, QD(19 U IN THE MORNING AND 15 U IN THE EVENING)
     Route: 058
     Dates: start: 20211227, end: 20220110
  7. RYZODEG 70/30 [Suspect]
     Active Substance: INSULIN ASPART\INSULIN DEGLUDEC
     Dosage: 33 IU, QD(21 U IN THE MORNING AND 11 U IN THE EVENING)
     Route: 058
     Dates: start: 20220124, end: 20220321
  8. ACARBOSE [Concomitant]
     Active Substance: ACARBOSE
     Indication: Type 2 diabetes mellitus
     Dosage: 50 MG, TID
     Route: 048
     Dates: start: 20210429
  9. NITRENDIPINE [Interacting]
     Active Substance: NITRENDIPINE
     Indication: Hypertension
     Dosage: 10 MG, QD
     Route: 048
  10. CLOPIDOGREL BISULFATE [Concomitant]
     Active Substance: CLOPIDOGREL BISULFATE
     Indication: Arteriosclerosis
     Dosage: 75 MG, QD
     Route: 048
     Dates: start: 20190416
  11. ASPIRIN [Concomitant]
     Active Substance: ASPIRIN
     Indication: Arteriosclerosis
     Dosage: 100 MG, QD
     Route: 048
     Dates: start: 20190416
  12. CLOPIDOGREL BISULFATE [Concomitant]
     Active Substance: CLOPIDOGREL BISULFATE
     Indication: Arteriosclerosis
     Dosage: 75 MG, QD
     Route: 048
  13. CLOPIDOGREL BISULFATE [Concomitant]
     Active Substance: CLOPIDOGREL BISULFATE
     Indication: Arterial occlusive disease
  14. METFORMIN HYDROCHLORIDE [Concomitant]
     Active Substance: METFORMIN HYDROCHLORIDE
     Indication: Type 2 diabetes mellitus
     Dosage: 0.5 G, QD
     Route: 048
     Dates: start: 20190429

REACTIONS (3)
  - Sudden cardiac death [Fatal]
  - Hypoglycaemia [Recovered/Resolved]
  - Hypoglycaemia [Unknown]

NARRATIVE: CASE EVENT DATE: 20220101
